FAERS Safety Report 4948970-7 (Version None)
Quarter: 2006Q1

REPORT INFORMATION
  Report Type: 
  Country: None (occurrence: None)
  Receive Date: 20060321
  Receipt Date: 20060307
  Transmission Date: 20060701
  Serious: Yes (Hospitalization)
  Sender: FDA-Public Use
  Company Number: US-BRISTOL-MYERS SQUIBB COMPANY-13306220

PATIENT
  Age: 38 Year
  Sex: Female
  Weight: 73 kg

DRUGS (7)
  1. CARBOPLATIN [Suspect]
     Indication: BREAST CANCER METASTATIC
     Dosage: INIT. 20-FEB-2006/ADMIN. DAYS 1 + 8 OF A 21-DAY CYCLE/INTERPTD 06-MAR-2006/REST.13-MAR-2006 DOSE DEC
     Route: 042
     Dates: start: 20060227, end: 20060227
  2. IRINOTECAN [Suspect]
     Indication: BREAST CANCER METASTATIC
     Dosage: INIT.20-FEB-2006/ADMIN DAYS 1 + 8 OF A 21-DAY CYCLE/INTERPTD 03-MAR-2006/RESTD 13-MAR-2006 DOSE DEC
     Route: 042
     Dates: start: 20060227, end: 20060227
  3. ATIVAN [Concomitant]
     Indication: NAUSEA
     Dosage: EVERY 6 HOURS PRN.
     Route: 048
     Dates: start: 20060220
  4. ATIVAN [Concomitant]
     Indication: ANXIETY
     Dosage: EVERY 6 HOURS PRN.
     Route: 048
     Dates: start: 20060220
  5. COMPAZINE [Concomitant]
     Indication: NAUSEA
     Dosage: EVERY 6 HOURS PRN.
     Route: 048
     Dates: start: 20060220
  6. IMODIUM [Concomitant]
     Indication: DIARRHOEA
     Dosage: EVERY 4 HOURS PRN.
     Route: 048
     Dates: start: 20060304
  7. ZOFRAN [Concomitant]
     Indication: NAUSEA
     Dosage: EVERY 8 HOURS PRN.
     Route: 048
     Dates: start: 20060220

REACTIONS (10)
  - BLOOD GLUCOSE INCREASED [None]
  - CLOSTRIDIAL INFECTION [None]
  - DEHYDRATION [None]
  - HYPOMAGNESAEMIA [None]
  - HYPOTENSION [None]
  - METASTASES TO LIVER [None]
  - METASTASES TO LUNG [None]
  - NEUTROPENIA [None]
  - OOPHORECTOMY BILATERAL [None]
  - SELF-MEDICATION [None]
